FAERS Safety Report 9786215 (Version 1)
Quarter: 2013Q4

REPORT INFORMATION
  Report Type: Spontaneous
  Country: US (occurrence: US)
  Receive Date: 20131227
  Receipt Date: 20131227
  Transmission Date: 20140711
  Serious: Yes (Other)
  Sender: FDA-Public Use
  Company Number: US-BRISTOL-MYERS SQUIBB COMPANY-19914225

PATIENT
  Age: 65 Year
  Sex: Female
  Weight: 99.7 kg

DRUGS (2)
  1. BYDUREON [Suspect]
     Indication: TYPE 2 DIABETES MELLITUS
     Route: 058
     Dates: start: 2012
  2. METFORMIN HCL [Suspect]

REACTIONS (7)
  - Skin cancer [Unknown]
  - Injection site haemorrhage [Unknown]
  - Injection site nodule [Unknown]
  - Injection site bruising [Unknown]
  - Dyspepsia [Unknown]
  - Abdominal distension [Unknown]
  - Lethargy [Unknown]
